FAERS Safety Report 4695424-1 (Version None)
Quarter: 2005Q2

REPORT INFORMATION
  Report Type: 
  Country: None (occurrence: None)
  Receive Date: 20050608
  Receipt Date: 20050404
  Transmission Date: 20051028
  Serious: Yes (Other)
  Sender: FDA-Public Use
  Company Number: 400977

PATIENT

DRUGS (3)
  1. ACCUTANE [Suspect]
     Dates: start: 20031021, end: 20040310
  2. ORAL CONTRACEPTIVE PILL (ORAL CONTRACEPTIVE NOS) [Concomitant]
  3. DEPO-PROVERA SUSPENSION/INJ [Concomitant]

REACTIONS (1)
  - ABORTION SPONTANEOUS [None]
